FAERS Safety Report 14974100 (Version 1)
Quarter: 2018Q2

REPORT INFORMATION
  Report Type: Report from Study
  Country: JP (occurrence: JP)
  Receive Date: 20180605
  Receipt Date: 20180605
  Transmission Date: 20180711
  Serious: Yes (Other)
  Sender: FDA-Public Use
  Company Number: JP-JNJFOC-20180200132

PATIENT
  Age: 77 Year
  Sex: Male
  Weight: 54 kg

DRUGS (3)
  1. IMBRUVICA [Suspect]
     Active Substance: IBRUTINIB
     Indication: CHRONIC LYMPHOCYTIC LEUKAEMIA REFRACTORY
     Dosage: IBRUTINIB:140MG
     Route: 048
     Dates: start: 20160915, end: 20161011
  2. IMBRUVICA [Suspect]
     Active Substance: IBRUTINIB
     Indication: CHRONIC LYMPHOCYTIC LEUKAEMIA REFRACTORY
     Dosage: IBRUTINIB:140MG
     Route: 048
     Dates: start: 20161012, end: 20170302
  3. IMBRUVICA [Suspect]
     Active Substance: IBRUTINIB
     Indication: CHRONIC LYMPHOCYTIC LEUKAEMIA REFRACTORY
     Dosage: IBRUTINIB:140MG
     Route: 048
     Dates: start: 20160621, end: 20160818

REACTIONS (3)
  - Hepatic function abnormal [Recovered/Resolved]
  - Nausea [Recovering/Resolving]
  - Platelet count decreased [Not Recovered/Not Resolved]

NARRATIVE: CASE EVENT DATE: 20160818
